FAERS Safety Report 4676126-4 (Version None)
Quarter: 2005Q2

REPORT INFORMATION
  Report Type: 
  Country: None (occurrence: None)
  Receive Date: 20050527
  Receipt Date: 20050331
  Transmission Date: 20051028
  Serious: Yes (Other)
  Sender: FDA-Public Use
  Company Number: US-GLAXOSMITHKLINE-A0552168A

PATIENT
  Age: 40 Year
  Sex: Male
  Weight: 99.5 kg

DRUGS (4)
  1. WELLBUTRIN XL [Suspect]
     Indication: DEPRESSION
     Dosage: 300MG PER DAY
     Route: 048
     Dates: start: 20050314, end: 20050327
  2. EFFEXOR XR [Concomitant]
  3. VASOTEC [Concomitant]
  4. HYDROCHLOROTHIAZIDE [Concomitant]

REACTIONS (7)
  - ARTHRALGIA [None]
  - CHILLS [None]
  - DYSPNOEA [None]
  - PYREXIA [None]
  - SWELLING [None]
  - URTICARIA [None]
  - WHITE BLOOD CELL COUNT INCREASED [None]
